FAERS Safety Report 11031026 (Version 2)
Quarter: 2015Q2

REPORT INFORMATION
  Report Type: Report from Study
  Country: CA (occurrence: None)
  Receive Date: 20150413
  Receipt Date: 20150522
  Transmission Date: 20150821
  Serious: Yes (Hospitalization)
  Sender: FDA-Public Use
  Company Number: 2015SA029199

PATIENT
  Age: 54 Year
  Sex: Male

DRUGS (4)
  1. PLERIXAFOR (PLERIXAFOR) / UNKNOWN [Suspect]
     Active Substance: PLERIXAFOR
     Indication: HAEMATOPOIETIC STEM CELL MOBILISATION
     Route: 058
     Dates: start: 20150224, end: 20150226
  2. G-CSF [Concomitant]
     Active Substance: GRANULOCYTE COLONY-STIMULATING FACTOR NOS
  3. ACYCLOVIR. [Concomitant]
     Active Substance: ACYCLOVIR
  4. TYLENOL [Concomitant]
     Active Substance: ACETAMINOPHEN

REACTIONS (7)
  - Nausea [None]
  - Fatigue [None]
  - Pyrexia [None]
  - Chills [None]
  - Alopecia [None]
  - Asthenia [None]
  - Body temperature increased [None]

NARRATIVE: CASE EVENT DATE: 20150226
